FAERS Safety Report 9234182 (Version 2)
Quarter: 2013Q2

REPORT INFORMATION
  Report Type: Spontaneous
  Country: BR (occurrence: BR)
  Receive Date: 20130416
  Receipt Date: 20130516
  Transmission Date: 20140414
  Serious: Yes (Life-Threatening, Other)
  Sender: FDA-Public Use
  Company Number: BR-ROCHE-1201414

PATIENT
  Sex: Female

DRUGS (7)
  1. XOLAIR [Suspect]
     Indication: ASTHMA
     Route: 058
  2. AEROLIN [Concomitant]
     Route: 065
  3. ONBREZ [Concomitant]
     Route: 065
  4. SPIRIVA [Concomitant]
     Route: 065
  5. PANTOCAL [Concomitant]
     Route: 065
  6. BAMIFIX [Concomitant]
     Route: 065
  7. NASONEX [Concomitant]
     Route: 065

REACTIONS (3)
  - Allergic granulomatous angiitis [Not Recovered/Not Resolved]
  - IIIrd nerve paralysis [Not Recovered/Not Resolved]
  - Renal impairment [Unknown]
